FAERS Safety Report 9541170 (Version 1)
Quarter: 2013Q3

REPORT INFORMATION
  Report Type: Spontaneous
  Country: US (occurrence: US)
  Receive Date: 20130923
  Receipt Date: 20130923
  Transmission Date: 20140515
  Serious: No
  Sender: FDA-Public Use
  Company Number: US-BIOGENIDEC-2013BI087434

PATIENT
  Age: 58 Year
  Sex: Female

DRUGS (6)
  1. AVONEX [Suspect]
     Indication: MULTIPLE SCLEROSIS
     Route: 030
     Dates: start: 20011127, end: 2003
  2. AVONEX [Suspect]
     Indication: MULTIPLE SCLEROSIS
     Route: 030
     Dates: start: 2003, end: 2013
  3. AVONEX [Suspect]
     Indication: MULTIPLE SCLEROSIS
     Route: 030
     Dates: start: 2013
  4. NEXIUM [Concomitant]
     Indication: GASTROOESOPHAGEAL REFLUX DISEASE
  5. NAPROXEN [Concomitant]
     Indication: PAIN
     Dates: end: 20130701
  6. PREDNISONE [Concomitant]
     Indication: ARTHRALGIA
     Dates: start: 2013

REACTIONS (11)
  - Abdominal pain upper [Recovered/Resolved]
  - Fatigue [Recovered/Resolved]
  - Nephrolithiasis [Recovered/Resolved]
  - Fear [Recovered/Resolved]
  - Coccydynia [Unknown]
  - Gastrointestinal ulcer [Unknown]
  - Back pain [Unknown]
  - Lumbar spinal stenosis [Not Recovered/Not Resolved]
  - Constipation [Unknown]
  - Spondylitis [Unknown]
  - Anxiety [Recovered/Resolved]
